FAERS Safety Report 10238579 (Version 3)
Quarter: 2018Q3

REPORT INFORMATION
  Report Type: Spontaneous
  Country: US (occurrence: US)
  Receive Date: 20140616
  Receipt Date: 20180823
  Transmission Date: 20181010
  Serious: Yes (Other)
  Sender: FDA-Public Use
  Company Number: US-PFIZER INC-2014164333

PATIENT
  Age: 68 Year
  Sex: Female
  Weight: 95.25 kg

DRUGS (7)
  1. VERAPAMIL [Concomitant]
     Active Substance: VERAPAMIL HYDROCHLORIDE
     Indication: HYPERTENSION
     Dosage: 120 MG, DAILY
  2. SIMVASTATIN. [Concomitant]
     Active Substance: SIMVASTATIN
     Indication: BLOOD CHOLESTEROL INCREASED
     Dosage: 20 MG, DAILY
  3. DULOXETINE. [Concomitant]
     Active Substance: DULOXETINE
     Dosage: 60 MG, 2X/DAY
  4. GABAPENTIN. [Concomitant]
     Active Substance: GABAPENTIN
     Dosage: UNK
  5. LISINOPRIL. [Concomitant]
     Active Substance: LISINOPRIL
     Indication: HYPERTENSION
     Dosage: 20 MG, DAILY
  6. LYRICA [Suspect]
     Active Substance: PREGABALIN
     Indication: FIBROMYALGIA
     Dosage: 100 MG, DAILY
     Dates: end: 2014
  7. LYRICA [Suspect]
     Active Substance: PREGABALIN
     Dosage: UNK, 2X/DAY (TWICE A DAY)

REACTIONS (11)
  - Fall [Unknown]
  - Malaise [Unknown]
  - Tooth fracture [Unknown]
  - Muscle disorder [Unknown]
  - Tooth disorder [Unknown]
  - Gingival swelling [Unknown]
  - Diabetes mellitus [Unknown]
  - Haemorrhage [Unknown]
  - Somnolence [Unknown]
  - Loose tooth [Unknown]
  - Fatigue [Unknown]

NARRATIVE: CASE EVENT DATE: 2014
